FAERS Safety Report 8436973-X (Version None)
Quarter: 2012Q2

REPORT INFORMATION
  Report Type: 
  Country: None (occurrence: None)
  Receive Date: 20120611
  Receipt Date: 20120611
  Transmission Date: 20120825
  Serious: Yes (Disabling, Other)
  Sender: FDA-Public Use
  Company Number: None

PATIENT
  Age: 48 Year
  Sex: Male
  Weight: 86.1834 kg

DRUGS (2)
  1. PROPECIA [Suspect]
     Indication: ALOPECIA
     Dosage: 1 TIME DAILY PO CONTINUOUS
     Route: 048
     Dates: start: 19970101, end: 20041010
  2. FINASTERIDE [Suspect]
     Indication: ALOPECIA
     Dosage: 1 TIME DAILY PO CONTINUOUS
     Route: 048
     Dates: start: 20040101, end: 20120107

REACTIONS (6)
  - PEYRONIE'S DISEASE [None]
  - MEMORY IMPAIRMENT [None]
  - LOSS OF LIBIDO [None]
  - PENILE SIZE REDUCED [None]
  - ANXIETY [None]
  - SENSORY DISTURBANCE [None]
